FAERS Safety Report 5073539-6 (Version None)
Quarter: 2006Q3

REPORT INFORMATION
  Report Type: 
  Country: None (occurrence: None)
  Receive Date: 20060803
  Receipt Date: 20060721
  Transmission Date: 20061208
  Serious: Yes (Other)
  Sender: FDA-Public Use
  Company Number: 2006089165

PATIENT
  Age: 60 Year
  Sex: Female
  Weight: 55 kg

DRUGS (2)
  1. DEPO-MEDROL [Suspect]
     Indication: TENDONITIS
     Dosage: 80 MG (80 MG, 1 IN 1 TOTAL), INTRAMUSCULAR
     Route: 030
     Dates: start: 20060711, end: 20060711
  2. XYLOCAINE [Suspect]
     Indication: TENDONITIS
     Dosage: 3 ML
     Dates: start: 20060711, end: 20060712

REACTIONS (2)
  - MUSCULOSKELETAL PAIN [None]
  - MUSCULOSKELETAL STIFFNESS [None]
